FAERS Safety Report 6956955-4 (Version None)
Quarter: 2010Q3

REPORT INFORMATION
  Report Type: 
  Country: None (occurrence: None)
  Receive Date: 20100827
  Receipt Date: 20100827
  Transmission Date: 20110219
  Serious: Yes (Hospitalization)
  Sender: FDA-Public Use
  Company Number: None

PATIENT
  Sex: Male
  Weight: 83.9 kg

DRUGS (1)
  1. OCTAGAM [Suspect]
     Indication: MYASTHENIA GRAVIS
     Dosage: 4 DAY INFUSION IV DRIP
     Route: 041
     Dates: start: 20100603, end: 20100630

REACTIONS (6)
  - BLINDNESS TRANSIENT [None]
  - BLINDNESS UNILATERAL [None]
  - BLOOD PRESSURE INCREASED [None]
  - HEADACHE [None]
  - TRANSIENT ISCHAEMIC ATTACK [None]
  - VISION BLURRED [None]
